FAERS Safety Report 7451509-8 (Version None)
Quarter: 2011Q2

REPORT INFORMATION
  Report Type: 
  Country: None (occurrence: None)
  Receive Date: 20110425
  Receipt Date: 20110412
  Transmission Date: 20111010
  Serious: Yes (Other)
  Sender: FDA-Public Use
  Company Number: 2011SP016404

PATIENT
  Age: 74 Year
  Sex: Female

DRUGS (1)
  1. INTRON A [Suspect]
     Indication: MALIGNANT MELANOMA
     Dosage: 3 MIU; TID)
     Dates: start: 20101110, end: 20110131

REACTIONS (2)
  - DISEASE PROGRESSION [None]
  - DEMENTIA [None]
